FAERS Safety Report 4819591-1 (Version None)
Quarter: 2005Q4

REPORT INFORMATION
  Report Type: 
  Country: None (occurrence: None)
  Receive Date: 20051102
  Receipt Date: 20051018
  Transmission Date: 20060501
  Serious: No
  Sender: FDA-Public Use
  Company Number: 2005S1010201

PATIENT
  Age: 52 Year
  Sex: Female
  Weight: 62.5964 kg

DRUGS (6)
  1. FENTANYL [Suspect]
     Indication: MUSCLE CONTRACTURE
     Dosage: 25 MCG/HR;Q3D;TRANS
     Route: 062
     Dates: start: 20050927, end: 20051016
  2. FENTANYL [Suspect]
     Indication: MUSCLE CONTRACTURE
     Dosage: 50 MCG/HR;Q3D;TRANS
     Route: 062
     Dates: start: 20050927, end: 20051016
  3. LEVETIRACETAM [Concomitant]
  4. TIZANIDINE HCL [Concomitant]
  5. ZIPRASIDONE HYDROCHLORIDE [Concomitant]
  6. BACLOFEN [Concomitant]

REACTIONS (6)
  - DEPRESSED LEVEL OF CONSCIOUSNESS [None]
  - DRUG WITHDRAWAL SYNDROME [None]
  - HYPOVENTILATION [None]
  - INCORRECT DOSE ADMINISTERED [None]
  - SHOULDER PAIN [None]
  - WRONG TECHNIQUE IN DRUG USAGE PROCESS [None]
